FAERS Safety Report 13381114 (Version 2)
Quarter: 2018Q4

REPORT INFORMATION
  Report Type: Spontaneous
  Country: US (occurrence: US)
  Receive Date: 20170329
  Receipt Date: 20181012
  Transmission Date: 20190204
  Serious: Yes (Other)
  Sender: FDA-Public Use
  Company Number: US-PFIZER INC-2017132859

PATIENT
  Age: 59 Year
  Sex: Female

DRUGS (1)
  1. XELJANZ XR [Suspect]
     Active Substance: TOFACITINIB CITRATE
     Dosage: 11 MG, UNK

REACTIONS (6)
  - Rheumatoid nodule [Unknown]
  - Musculoskeletal stiffness [Recovering/Resolving]
  - Red blood cell sedimentation rate increased [Unknown]
  - Synovitis [Unknown]
  - Upper respiratory tract infection [Unknown]
  - Swelling [Recovering/Resolving]
